FAERS Safety Report 4359864-2 (Version None)
Quarter: 2004Q2

REPORT INFORMATION
  Report Type: 
  Country: None (occurrence: None)
  Receive Date: 20040517
  Receipt Date: 20040517
  Transmission Date: 20050107
  Serious: Yes (Life-Threatening, Disabling)
  Sender: FDA-Public Use
  Company Number: None

PATIENT
  Sex: Female
  Weight: 85.2762 kg

DRUGS (1)
  1. RISPERDAL [Suspect]

REACTIONS (18)
  - ABNORMAL BEHAVIOUR [None]
  - ACCIDENT [None]
  - DIABETES MELLITUS [None]
  - DISTURBANCE IN ATTENTION [None]
  - DRUG INTOLERANCE [None]
  - DYSPNOEA [None]
  - EAR HAEMORRHAGE [None]
  - EPISTAXIS [None]
  - FEELING ABNORMAL [None]
  - HEART RATE DECREASED [None]
  - HYPERSOMNIA [None]
  - HYPERTENSION [None]
  - MARKEDLY REDUCED DIETARY INTAKE [None]
  - MEDICATION ERROR [None]
  - MENTAL IMPAIRMENT [None]
  - NERVOUS SYSTEM DISORDER [None]
  - TREMOR [None]
  - VOMITING [None]
